FAERS Safety Report 12912493 (Version 3)
Quarter: 2016Q4

REPORT INFORMATION
  Report Type: Spontaneous
  Country: FR (occurrence: FR)
  Receive Date: 20161104
  Receipt Date: 20161130
  Transmission Date: 20170207
  Serious: Yes (Hospitalization, Other)
  Sender: FDA-Public Use
  Company Number: FR-PFIZER INC-2016502429

PATIENT
  Age: 83 Year
  Sex: Female
  Weight: 65 kg

DRUGS (5)
  1. DUOPLAVIN [Suspect]
     Active Substance: ASPIRIN\CLOPIDOGREL
     Indication: TRANSIENT ISCHAEMIC ATTACK
     Dosage: 1 DF, 1X/DAY
     Route: 048
     Dates: start: 20160926, end: 20161014
  2. OFLOCET /00731801/ [Suspect]
     Active Substance: OFLOXACIN
     Dosage: 200 MG, 1X/DAY
     Route: 048
     Dates: start: 20161009, end: 20161014
  3. TAHOR [Suspect]
     Active Substance: ATORVASTATIN CALCIUM
     Dosage: 80 MG, 1X/DAY
     Route: 048
     Dates: start: 20160926, end: 20161014
  4. CEFTRIAXONE. [Concomitant]
     Active Substance: CEFTRIAXONE
  5. EUPANTOL [Suspect]
     Active Substance: PANTOPRAZOLE SODIUM
     Dosage: 20 MG, 1X/DAY
     Route: 048
     Dates: start: 20160926, end: 20161014

REACTIONS (5)
  - Jaundice [Recovering/Resolving]
  - Presyncope [Unknown]
  - Pyrexia [Unknown]
  - Cholestatic liver injury [Recovering/Resolving]
  - Weight decreased [Unknown]

NARRATIVE: CASE EVENT DATE: 20161009
